FAERS Safety Report 9895935 (Version 2)
Quarter: 2014Q1

REPORT INFORMATION
  Report Type: Spontaneous
  Country: US (occurrence: US)
  Receive Date: 20140213
  Receipt Date: 20140213
  Transmission Date: 20141002
  Serious: No
  Sender: FDA-Public Use
  Company Number: US-BRISTOL-MYERS SQUIBB COMPANY-17399304

PATIENT
  Age: 35 Year
  Sex: Female
  Weight: 109.29 kg

DRUGS (1)
  1. ORENCIA FOR INJ [Suspect]
     Indication: RHEUMATOID ARTHRITIS
     Dosage: LAST INF:31JAN2013
     Route: 042
     Dates: start: 20130103

REACTIONS (3)
  - Alopecia [Unknown]
  - Dysgeusia [Unknown]
  - Drug ineffective [Unknown]
